FAERS Safety Report 4493542-4 (Version None)
Quarter: 2004Q4

REPORT INFORMATION
  Report Type: 
  Country: None (occurrence: None)
  Receive Date: 20041102
  Receipt Date: 20041102
  Transmission Date: 20050328
  Serious: Yes (Hospitalization)
  Sender: FDA-Public Use
  Company Number: None

PATIENT
  Age: 61 Year
  Sex: Female

DRUGS (10)
  1. WARFARIN SODIUM [Suspect]
     Dosage: 5 MG    DAILY    ORAL
     Route: 048
     Dates: start: 20040507, end: 20040613
  2. URSODIOL [Concomitant]
  3. FUROSEMIDE [Concomitant]
  4. RANITIDINE [Concomitant]
  5. HUMALOG MIX 75/25 [Concomitant]
  6. CARDIZEM  -DILTIA XT [Concomitant]
  7. RAMIPRIL [Concomitant]
  8. IRON SULFATETHIAMIN COMPOUND TAB [Concomitant]
  9. ALBUTEROL [Concomitant]
  10. ASPIRIN [Concomitant]

REACTIONS (5)
  - DIARRHOEA [None]
  - FAECES DISCOLOURED [None]
  - FATIGUE [None]
  - GASTRIC ULCER [None]
  - WEIGHT DECREASED [None]
